FAERS Safety Report 10346866 (Version 1)
Quarter: 2014Q3

REPORT INFORMATION
  Report Type: Spontaneous
  Country: US (occurrence: None)
  Receive Date: 20140725
  Receipt Date: 20140725
  Transmission Date: 20150326
  Serious: Yes (Other)
  Sender: FDA-Public Use
  Company Number: None

PATIENT
  Age: 34 Year
  Sex: Female
  Weight: 90.72 kg

DRUGS (1)
  1. NITROFURANTOIN MONO 100 MG CAP MACROBID [Suspect]
     Active Substance: NITROFURANTOIN
     Indication: KIDNEY INFECTION
     Dosage: 1 CAP 2 TIMES DAILY TAKEN BY MOUTH
     Route: 048
     Dates: start: 20140720, end: 20140723

REACTIONS (4)
  - Nausea [None]
  - Abdominal pain upper [None]
  - Dehydration [None]
  - Urine ketone body present [None]

NARRATIVE: CASE EVENT DATE: 20140720
